FAERS Safety Report 5323601-5 (Version None)
Quarter: 2007Q2

REPORT INFORMATION
  Report Type: 
  Country: None (occurrence: None)
  Receive Date: 20070508
  Receipt Date: 20070427
  Transmission Date: 20071010
  Serious: Yes (Life-Threatening, Hospitalization, Other)
  Sender: FDA-Public Use
  Company Number: 2007US000511

PATIENT
  Sex: Female

DRUGS (1)
  1. ADENOSCAN (ADENOSINE) INJECTION [Suspect]
     Indication: SCAN MYOCARDIAL PERFUSION
     Dates: start: 20061026

REACTIONS (20)
  - ABSCESS [None]
  - ARTHRALGIA [None]
  - CORONARY ARTERY DISEASE [None]
  - DRUG HYPERSENSITIVITY [None]
  - EATING DISORDER [None]
  - FACIAL PAIN [None]
  - HEADACHE [None]
  - INSOMNIA [None]
  - JOINT DISLOCATION [None]
  - LOCALISED INFECTION [None]
  - MUSCLE SPASMS [None]
  - ORAL HERPES [None]
  - OSTEOARTHRITIS [None]
  - PAIN IN JAW [None]
  - POST PROCEDURAL COMPLICATION [None]
  - PROCEDURAL PAIN [None]
  - SCREAMING [None]
  - SINUS DISORDER [None]
  - TEMPOROMANDIBULAR JOINT SYNDROME [None]
  - TOOTH FRACTURE [None]
